FAERS Safety Report 25428848 (Version 1)
Quarter: 2025Q2

REPORT INFORMATION
  Report Type: Spontaneous
  Country: US (occurrence: US)
  Receive Date: 20250612
  Receipt Date: 20250612
  Transmission Date: 20250717
  Serious: No
  Sender: BAYER HEALTHCARE PHARMACEUTICALS INC.
  Company Number: US-BAYER-2025A077017

PATIENT
  Age: 33 Year
  Sex: Female

DRUGS (3)
  1. ADEMPAS [Suspect]
     Active Substance: RIOCIGUAT
     Indication: Pulmonary arterial hypertension
     Dosage: 1 MG, TID
     Route: 048
     Dates: start: 202503
  2. AMBRISENTAN [Concomitant]
     Active Substance: AMBRISENTAN
     Indication: Pulmonary arterial hypertension
     Dosage: 10 MG, QD
     Route: 048
     Dates: start: 202306
  3. UPTRAVI [Concomitant]
     Active Substance: SELEXIPAG
     Dosage: 1600 ?G, BID
     Route: 048
     Dates: start: 202312

REACTIONS (1)
  - Muscle fatigue [Not Recovered/Not Resolved]
